FAERS Safety Report 7142623-5 (Version None)
Quarter: 2010Q4

REPORT INFORMATION
  Report Type: 
  Country: None (occurrence: None)
  Receive Date: 20101207
  Receipt Date: 20101129
  Transmission Date: 20110411
  Serious: Yes (Congenital Anomaly)
  Sender: FDA-Public Use
  Company Number: US-TEVA-257403USA

PATIENT
  Sex: Male

DRUGS (1)
  1. PAROXETINE HCL [Suspect]
     Route: 064

REACTIONS (5)
  - CONGENITAL AORTIC ANOMALY [None]
  - CONGENITAL AORTIC VALVE INCOMPETENCE [None]
  - CONGENITAL HEPATIC FIBROSIS [None]
  - CONGENITAL RENAL DISORDER [None]
  - PULMONARY VALVE STENOSIS CONGENITAL [None]
